FAERS Safety Report 7817520-X (Version None)
Quarter: 2011Q4

REPORT INFORMATION
  Report Type: 
  Country: None (occurrence: None)
  Receive Date: 20111017
  Receipt Date: 20111004
  Transmission Date: 20120403
  Serious: Yes (Hospitalization)
  Sender: FDA-Public Use
  Company Number: FR-JNJFOC-20110908951

PATIENT
  Sex: Male

DRUGS (3)
  1. INFLIXIMAB, RECOMBINANT [Suspect]
     Indication: CROHN'S DISEASE
     Route: 042
     Dates: start: 20060511
  2. IMMUNOMODULATORS [Concomitant]
     Route: 065
  3. INFLIXIMAB, RECOMBINANT [Suspect]
     Dosage: 11TH DOSE
     Route: 042
     Dates: start: 20071119

REACTIONS (1)
  - ANAPHYLACTIC SHOCK [None]
